FAERS Safety Report 4844663-5 (Version None)
Quarter: 2005Q4

REPORT INFORMATION
  Report Type: 
  Country: None (occurrence: None)
  Receive Date: 20051205
  Receipt Date: 20051201
  Transmission Date: 20060501
  Serious: Yes (Death)
  Sender: FDA-Public Use
  Company Number: CO-BOEHRINGER INGELHEIM PHARMACEUTICALS, INC.-2005-BP-20888CL

PATIENT
  Sex: Female
  Weight: 62 kg

DRUGS (6)
  1. TIOTROPIUM INH. POWDER [Suspect]
     Indication: CHRONIC OBSTRUCTIVE PULMONARY DISEASE
     Route: 055
     Dates: start: 20020101
  2. ALDACTONE (ESPIRONOLACTONE) [Concomitant]
     Route: 048
     Dates: start: 20000101
  3. LANITOP [Concomitant]
     Route: 048
     Dates: start: 20000101
  4. CALISIVON D (CALCIUM CITRATE) [Concomitant]
     Route: 048
     Dates: start: 20000101
  5. LASIX [Concomitant]
     Route: 048
     Dates: start: 20000101
  6. ACETAMINOFEN (PARACETAMOL) [Concomitant]
     Route: 048
     Dates: start: 20000101

REACTIONS (1)
  - CARDIAC FAILURE [None]
